FAERS Safety Report 16114572 (Version 1)
Quarter: 2019Q1

REPORT INFORMATION
  Report Type: Spontaneous
  Country: US (occurrence: US)
  Receive Date: 20190325
  Receipt Date: 20190325
  Transmission Date: 20190418
  Serious: No
  Sender: FDA-Public Use
  Company Number: US-BAYER-2019-056677

PATIENT
  Age: 62 Year
  Sex: Male
  Weight: 152 kg

DRUGS (6)
  1. GABAPENTIN. [Concomitant]
     Active Substance: GABAPENTIN
  2. AMBIEN [Concomitant]
     Active Substance: ZOLPIDEM TARTRATE
  3. MILK OF MAGNESIA [Suspect]
     Active Substance: MAGNESIUM HYDROXIDE
     Indication: ABDOMINAL PAIN UPPER
     Dosage: 1 TABLESPOON 2 DAILY
     Route: 048
     Dates: start: 2005
  4. EX LAX SENNA [Concomitant]
     Active Substance: SENNOSIDES A AND B
  5. OXYCODONE [Concomitant]
     Active Substance: OXYCODONE
  6. MIRALAX [Suspect]
     Active Substance: POLYETHYLENE GLYCOL 3350
     Indication: GASTROINTESTINAL DISORDER
     Dosage: 2 SPOONFULLS DAILY
     Route: 048
     Dates: start: 2005

REACTIONS (4)
  - Poor quality product administered [Unknown]
  - Product use issue [None]
  - Incorrect dosage administered [Unknown]
  - Product quality issue [Unknown]

NARRATIVE: CASE EVENT DATE: 2005
